FAERS Safety Report 5649904-2 (Version None)
Quarter: 2008Q1

REPORT INFORMATION
  Report Type: 
  Country: None (occurrence: None)
  Receive Date: 20080228
  Receipt Date: 20080213
  Transmission Date: 20080703
  Serious: Yes (Other)
  Sender: FDA-Public Use
  Company Number: 2250051-2008-00153

PATIENT
  Sex: Female

DRUGS (2)
  1. RHOGAM [Suspect]
     Indication: PREGNANCY
     Dosage: 300 UG 1X IM
     Route: 030
     Dates: start: 20040101
  2. RHOGAM [Suspect]
     Indication: PREGNANCY
     Dosage: 300 UG 1X IM
     Route: 030
     Dates: start: 20080101

REACTIONS (6)
  - DERMATOSIS [None]
  - DRUG EXPOSURE DURING PREGNANCY [None]
  - INJECTION SITE ERYTHEMA [None]
  - INJECTION SITE SWELLING [None]
  - REFUSAL OF TREATMENT BY PATIENT [None]
  - TELANGIECTASIA [None]
